FAERS Safety Report 17891169 (Version 1)
Quarter: 2020Q2

REPORT INFORMATION
  Report Type: Spontaneous
  Country: US (occurrence: US)
  Receive Date: 20200612
  Receipt Date: 20200612
  Transmission Date: 20200714
  Serious: No
  Sender: FDA-Public Use
  Company Number: US-PERRIGO-19US012760

PATIENT
  Sex: Female

DRUGS (2)
  1. MINOXIDIL. [Suspect]
     Active Substance: MINOXIDIL
     Indication: ALOPECIA
     Dosage: UNKNOWN, QD
     Route: 061
     Dates: start: 201907
  2. THYROID THERAPY [Concomitant]
     Active Substance: UNSPECIFIED INGREDIENT
     Indication: HYPOTHYROIDISM
     Dosage: UNKNOWN, UNKNOWN
     Route: 065

REACTIONS (4)
  - Drug ineffective [Unknown]
  - Underdose [Unknown]
  - Application site erythema [Unknown]
  - Application site pruritus [Unknown]

NARRATIVE: CASE EVENT DATE: 201907
